FAERS Safety Report 4678573-3 (Version None)
Quarter: 2005Q2

REPORT INFORMATION
  Report Type: 
  Country: None (occurrence: None)
  Receive Date: 20050601
  Receipt Date: 20050428
  Transmission Date: 20051028
  Serious: Yes (Other)
  Sender: FDA-Public Use
  Company Number: ES-AMGEN-UK129849

PATIENT
  Sex: Male

DRUGS (11)
  1. AMG 099073 [Suspect]
     Indication: HYPERPARATHYROIDISM SECONDARY
     Route: 048
     Dates: start: 20050201, end: 20050423
  2. ROCALTROL [Concomitant]
     Route: 065
  3. DUPHALAC [Concomitant]
     Route: 065
  4. ZARATOR [Concomitant]
     Route: 065
  5. ARANESP [Concomitant]
     Route: 065
  6. TAXOXIFEN [Concomitant]
     Route: 065
  7. OMEPRAZOLE [Concomitant]
     Route: 065
  8. POLARAMINE [Concomitant]
     Route: 065
  9. BECOZYME C FORTE [Concomitant]
     Route: 065
  10. CALCIUM CARBONATE [Concomitant]
     Route: 065
  11. ISPAGHULA [Concomitant]
     Route: 065

REACTIONS (2)
  - GASTRIC HAEMORRHAGE [None]
  - GASTRITIS EROSIVE [None]
